FAERS Safety Report 15695990 (Version 5)
Quarter: 2021Q2

REPORT INFORMATION
  Report Type: Report from Study
  Country: CA (occurrence: CA)
  Receive Date: 20181206
  Receipt Date: 20210626
  Transmission Date: 20210716
  Serious: Yes (Other)
  Sender: FDA-Public Use
  Company Number: PHHY2018CA173575

PATIENT
  Sex: Male

DRUGS (13)
  1. COSENTYX [Suspect]
     Active Substance: SECUKINUMAB
     Indication: PSORIASIS
     Dosage: 300 MG, QMO
     Route: 058
     Dates: start: 20180216
  2. DOVOBET [Concomitant]
     Active Substance: BETAMETHASONE\CALCIPOTRIENE
     Indication: PSORIASIS
     Dosage: UNK
     Route: 061
  3. METOPROLOL. [Suspect]
     Active Substance: METOPROLOL
     Indication: ARRHYTHMIA
  4. SIMPONI [Suspect]
     Active Substance: GOLIMUMAB
     Indication: PSORIASIS
     Dosage: UNK
     Route: 058
  5. METHOTREXATE. [Concomitant]
     Active Substance: METHOTREXATE
     Indication: PSORIASIS
     Dosage: UNK UNK, QW
     Route: 048
  6. PRADAXA [Concomitant]
     Active Substance: DABIGATRAN ETEXILATE MESYLATE
     Indication: ATRIAL FLUTTER
     Dosage: UNK UNK, BID
     Route: 048
  7. DOVONEX [Concomitant]
     Active Substance: CALCIPOTRIENE
     Indication: PSORIASIS
     Dosage: UNK
     Route: 061
  8. COSENTYX [Suspect]
     Active Substance: SECUKINUMAB
     Indication: PSORIATIC ARTHROPATHY
     Dosage: 300 MG, QMO
     Route: 058
     Dates: start: 20181108, end: 2020
  9. MYCOPHENOLATE MOFETIL. [Suspect]
     Active Substance: MYCOPHENOLATE MOFETIL
     Indication: PSORIATIC ARTHROPATHY
     Dosage: 3 DF, BID
     Route: 048
  10. METOPROLOL. [Suspect]
     Active Substance: METOPROLOL
     Indication: HYPERTENSION
     Dosage: UNK UNK, BID
     Route: 048
  11. RITUXAN [Suspect]
     Active Substance: RITUXIMAB
     Indication: PRODUCT USED FOR UNKNOWN INDICATION
     Dosage: UNK
     Route: 065
  12. DEXILANT [Concomitant]
     Active Substance: DEXLANSOPRAZOLE
     Indication: GASTROOESOPHAGEAL REFLUX DISEASE
     Dosage: UNK UNK, QD
     Route: 048
  13. ACITRETIN. [Concomitant]
     Active Substance: ACITRETIN
     Indication: PSORIASIS
     Dosage: UNK
     Route: 065

REACTIONS (4)
  - Balance disorder [Unknown]
  - Nervous system disorder [Unknown]
  - Sensory loss [Unknown]
  - Polyneuropathy [Unknown]

NARRATIVE: CASE EVENT DATE: 2020
